FAERS Safety Report 6011679-5 (Version None)
Quarter: 2008Q4

REPORT INFORMATION
  Report Type: 
  Country: None (occurrence: None)
  Receive Date: 20081218
  Receipt Date: 19880210
  Transmission Date: 20090506
  Serious: Yes (Death, Hospitalization, Other)
  Sender: FDA-Public Use
  Company Number: IT-ROCHE-880700009001

PATIENT
  Age: 38 Year
  Sex: Female

DRUGS (4)
  1. ROFERON-A [Suspect]
     Indication: CHRONIC HEPATITIS
     Route: 030
     Dates: start: 19870406, end: 19870412
  2. ROFERON-A [Suspect]
     Route: 030
     Dates: start: 19870413, end: 19870426
  3. STEROID [Concomitant]
     Route: 065
  4. STEROID [Concomitant]
     Route: 065
     Dates: start: 19860101, end: 19870101

REACTIONS (3)
  - DISEASE PROGRESSION [None]
  - HEPATIC NECROSIS [None]
  - HEPATITIS ACUTE [None]
